FAERS Safety Report 5550501-8 (Version None)
Quarter: 2007Q4

REPORT INFORMATION
  Report Type: 
  Country: None (occurrence: None)
  Receive Date: 20071212
  Receipt Date: 20070503
  Transmission Date: 20080405
  Serious: No
  Sender: FDA-Public Use
  Company Number: US-AMGEN-KDL212722

PATIENT
  Sex: Female

DRUGS (1)
  1. ENBREL [Suspect]
     Indication: RHEUMATOID ARTHRITIS
     Route: 058
     Dates: start: 20040101

REACTIONS (5)
  - DYSPNOEA [None]
  - FACIAL BONES FRACTURE [None]
  - INJURY [None]
  - LOSS OF CONSCIOUSNESS [None]
  - THYROID NEOPLASM [None]
